FAERS Safety Report 8227953-8 (Version None)
Quarter: 2012Q1

REPORT INFORMATION
  Report Type: 
  Country: None (occurrence: None)
  Receive Date: 20120322
  Receipt Date: 20120314
  Transmission Date: 20120608
  Serious: Yes (Hospitalization)
  Sender: FDA-Public Use
  Company Number: GXKR2010CA06319

PATIENT
  Age: 64 Year
  Sex: Female

DRUGS (14)
  1. DIGOXIN [Concomitant]
     Dosage: 0.25 MG, QD
     Route: 065
  2. ATORVASTATIN [Concomitant]
     Dosage: 10 MG, QD
     Route: 065
  3. AMIODARONE HYDROCHLORIDE [Suspect]
  4. IRBESARTAN [Concomitant]
     Dosage: 150 MG, BID
     Route: 065
  5. VENLAFAXINE [Suspect]
     Dosage: 112.5 MG, QD
     Route: 065
  6. CITALOPRAM HYDROBROMIDE [Concomitant]
     Dosage: 40 MG, UNK
     Route: 065
  7. FUROSEMIDE [Suspect]
     Dosage: 40 MG, QD
     Route: 065
  8. METFORMIN HCL [Concomitant]
     Dosage: 1000 MG, BID
     Route: 065
  9. GLYBURIDE [Concomitant]
     Dosage: 5 MG, BID
     Route: 065
  10. LEVOTHYROXINE SODIUM [Concomitant]
     Dosage: 200 UG, QD
     Route: 065
  11. DOMPERIDONE [Suspect]
     Dosage: 10 MG, TID
     Route: 065
  12. METOLAZONE [Suspect]
     Dosage: 2.5 MG, QD
     Route: 065
  13. OMEPRAZOLE [Concomitant]
     Dosage: 20 MG, QD
     Route: 065
  14. AMIODARONE HYDROCHLORIDE [Suspect]
     Dosage: 150 MG, UNK
     Route: 040

REACTIONS (8)
  - SYNCOPE [None]
  - HYPOMAGNESAEMIA [None]
  - TACHYCARDIA [None]
  - ELECTROCARDIOGRAM QT PROLONGED [None]
  - ATRIAL FIBRILLATION [None]
  - HYPOKALAEMIA [None]
  - TORSADE DE POINTES [None]
  - DIZZINESS [None]
